FAERS Safety Report 24466259 (Version 1)
Quarter: 2024Q4

REPORT INFORMATION
  Report Type: Report from Study
  Country: US (occurrence: US)
  Receive Date: 20241018
  Receipt Date: 20241018
  Transmission Date: 20250115
  Serious: No
  Sender: ROCHE
  Company Number: US-ROCHE-3544492

PATIENT
  Age: 77 Year
  Sex: Male
  Weight: 79.38 kg

DRUGS (11)
  1. XOLAIR [Suspect]
     Active Substance: OMALIZUMAB
     Indication: Idiopathic urticaria
     Route: 058
     Dates: start: 20240410
  2. XOLAIR [Suspect]
     Active Substance: OMALIZUMAB
  3. LEVOCETIRIZINE HYDROCHLORIDE [Concomitant]
     Active Substance: LEVOCETIRIZINE HYDROCHLORIDE
     Indication: Urticaria
     Route: 048
  4. PEPCID [Concomitant]
     Active Substance: FAMOTIDINE
     Route: 048
  5. FLONASE ALLERGY RELIEF [Concomitant]
     Active Substance: FLUTICASONE PROPIONATE
  6. HYDROCORTISONE BUTYRATE [Concomitant]
     Active Substance: HYDROCORTISONE BUTYRATE
     Indication: Skin lesion
     Dosage: TWICE DAILY AS NEEDED
     Route: 061
  7. PEPCID AC [Concomitant]
     Active Substance: FAMOTIDINE
     Dosage: 1 TABLET BY MOUTH DAILY AS NEEDED
     Route: 048
  8. ALBUTEROL SULFATE [Concomitant]
     Active Substance: ALBUTEROL SULFATE
     Dosage: 2-4 PUFFS EVERY 4-6 HOURS AS NEEDED
     Route: 055
  9. FLUTICASONE PROPIONATE [Concomitant]
     Active Substance: FLUTICASONE PROPIONATE
     Dosage: 2 SPRAY EACH NOSTRIL AS NEEDED DAILY
  10. SYMBICORT [Concomitant]
     Active Substance: BUDESONIDE\FORMOTEROL FUMARATE DIHYDRATE
     Dosage: 2 PUFFS DAILY AS NEEDED
     Route: 055
  11. XYZAL [Concomitant]
     Active Substance: LEVOCETIRIZINE DIHYDROCHLORIDE

REACTIONS (7)
  - Off label use [Unknown]
  - Drug ineffective [Unknown]
  - Insomnia [Unknown]
  - Upper-airway cough syndrome [Unknown]
  - Nasal congestion [Unknown]
  - Rhinorrhoea [Unknown]
  - Nasal pruritus [Unknown]
